FAERS Safety Report 10214117 (Version 1)
Quarter: 2014Q2

REPORT INFORMATION
  Report Type: Spontaneous
  Country: US (occurrence: None)
  Receive Date: 20140602
  Receipt Date: 20140602
  Transmission Date: 20141212
  Serious: Yes (Disabling)
  Sender: FDA-Public Use
  Company Number: None

PATIENT
  Age: 67 Year
  Sex: Female
  Weight: 88.91 kg

DRUGS (1)
  1. FLUOXETINE HCL [Suspect]
     Indication: DEPRESSION
     Route: 048
     Dates: start: 20140529, end: 20140601

REACTIONS (8)
  - Depression [None]
  - Disease recurrence [None]
  - Product substitution issue [None]
  - Therapeutic response changed [None]
  - Pain [None]
  - Dysphagia [None]
  - Product size issue [None]
  - Stupor [None]
